FAERS Safety Report 9679027 (Version 1)
Quarter: 2013Q4

REPORT INFORMATION
  Report Type: Spontaneous
  Country: US (occurrence: US)
  Receive Date: 20131108
  Receipt Date: 20131108
  Transmission Date: 20140711
  Serious: Yes (Other)
  Sender: FDA-Public Use
  Company Number: US-PFIZER INC-2013318488

PATIENT
  Age: 59 Year
  Sex: Female
  Weight: 81.6 kg

DRUGS (6)
  1. PRISTIQ [Suspect]
     Indication: DEPRESSION
     Dosage: 50 MG, 1X/DAY
     Route: 048
     Dates: start: 2009, end: 201309
  2. PRISTIQ [Suspect]
     Dosage: 50 MG, ALTERNATE DAY
     Route: 048
     Dates: start: 201309, end: 201309
  3. PRISTIQ [Suspect]
     Dosage: 50 MG, EVERY TWO DAYS
     Route: 048
     Dates: start: 201309, end: 201309
  4. PRISTIQ [Suspect]
     Dosage: 50 MG, EVERY FOURTH DAY
     Route: 048
     Dates: start: 201309, end: 201309
  5. PRISTIQ [Suspect]
     Dosage: 50 MG, UNK
     Route: 048
     Dates: start: 201309
  6. ONE A DAY WOMEN [Concomitant]
     Dosage: UNK

REACTIONS (12)
  - Mental impairment [Unknown]
  - Drug dependence [Unknown]
  - Drug withdrawal syndrome [Unknown]
  - Nausea [Unknown]
  - Vomiting [Unknown]
  - Diarrhoea [Unknown]
  - Feeling abnormal [Unknown]
  - Crying [Unknown]
  - Negative thoughts [Unknown]
  - Thinking abnormal [Unknown]
  - Headache [Unknown]
  - Weight increased [Unknown]
